FAERS Safety Report 7522339-3 (Version None)
Quarter: 2011Q2

REPORT INFORMATION
  Report Type: 
  Country: None (occurrence: None)
  Receive Date: 20110603
  Receipt Date: 20110526
  Transmission Date: 20111010
  Serious: Yes (Other)
  Sender: FDA-Public Use
  Company Number: PHHY2011BR46950

PATIENT
  Sex: Female

DRUGS (2)
  1. BUDESONIDE [Concomitant]
  2. FORMOTEROL FUMARATE [Suspect]

REACTIONS (3)
  - DYSPNOEA [None]
  - MALAISE [None]
  - BRONCHIAL DISORDER [None]
